FAERS Safety Report 20302187 (Version 2)
Quarter: 2022Q2

REPORT INFORMATION
  Report Type: Spontaneous
  Country: FR (occurrence: FR)
  Receive Date: 20220106
  Receipt Date: 20220419
  Transmission Date: 20220720
  Serious: Yes (Hospitalization, Other)
  Sender: FDA-Public Use
  Company Number: FR-AFSSAPS-NT20215859

PATIENT
  Age: 22 Year
  Sex: Female

DRUGS (3)
  1. LINEZOLID [Suspect]
     Active Substance: LINEZOLID
     Indication: Staphylococcal infection
     Dosage: 1200 MILLIGRAM, ONCE A DAY
     Route: 048
     Dates: start: 20211207, end: 20211217
  2. PIPERACILLIN SODIUM [Suspect]
     Active Substance: PIPERACILLIN SODIUM
     Indication: Staphylococcal infection
     Dosage: 12 GRAM, ONCE A DAY(4G 3X/J)
     Route: 042
     Dates: start: 20211207, end: 20211217
  3. TAZOBACTAM [Suspect]
     Active Substance: TAZOBACTAM
     Indication: Staphylococcal infection
     Dosage: 12 GRAM, ONCE A DAY(4G 3X/J)
     Route: 042
     Dates: start: 20211207, end: 20211217

REACTIONS (1)
  - Haemophagocytic lymphohistiocytosis [Recovered/Resolved]

NARRATIVE: CASE EVENT DATE: 20211213
